FAERS Safety Report 24156725 (Version 1)
Quarter: 2024Q3

REPORT INFORMATION
  Report Type: Spontaneous
  Country: VE (occurrence: VE)
  Receive Date: 20240731
  Receipt Date: 20240731
  Transmission Date: 20241017
  Serious: Yes (Other)
  Sender: ROCHE
  Company Number: VE-ROCHE-10000037177

PATIENT
  Age: 33 Year
  Sex: Male
  Weight: 91 kg

DRUGS (15)
  1. RITUXIMAB [Suspect]
     Active Substance: RITUXIMAB
     Indication: Diffuse large B-cell lymphoma stage II
     Dosage: DOSE AND FREQUENCY WERE NOT REPORTED - 8 CYCLES
     Route: 065
  2. RITUXIMAB [Suspect]
     Active Substance: RITUXIMAB
     Dosage: 375 MG/MT2
     Route: 065
  3. CYCLOPHOSPHAMIDE [Concomitant]
     Active Substance: CYCLOPHOSPHAMIDE
     Indication: Diffuse large B-cell lymphoma stage II
     Dosage: DOSE AND FREQUENCY WERE NOT REPORTED - 8 CYCLES
     Route: 065
  4. DOXORUBICIN [Concomitant]
     Active Substance: DOXORUBICIN
     Indication: Diffuse large B-cell lymphoma stage II
     Dosage: DOSE AND FREQUENCY WERE NOT REPORTED - 8 CYCLES
  5. VINCRISTINE [Concomitant]
     Active Substance: VINCRISTINE
     Indication: Diffuse large B-cell lymphoma stage II
     Dosage: DOSE AND FREQUENCY WERE NOT REPORTED - 8 CYCLES
  6. PREDNISONE [Concomitant]
     Active Substance: PREDNISONE
     Indication: Diffuse large B-cell lymphoma stage II
     Dosage: DOSE AND FREQUENCY WERE NOT REPORTED - 8 CYCLES
  7. IFOSFAMIDE [Concomitant]
     Active Substance: IFOSFAMIDE
     Indication: Diffuse large B-cell lymphoma stage II
     Dosage: DOSE AND FREQUENCY WERE NOT REPORTED - 3 CYCLES
  8. CARBOPLATIN [Concomitant]
     Active Substance: CARBOPLATIN
     Indication: Diffuse large B-cell lymphoma stage II
     Dosage: DOSE AND FREQUENCY WERE NOT REPORTED - 3 CYCLES
  9. ETOPOSIDE [Concomitant]
     Active Substance: ETOPOSIDE
     Indication: Diffuse large B-cell lymphoma stage II
     Dosage: DOSE AND FREQUENCY WERE NOT REPORTED - 3 CYCLES
  10. ETOPOSIDE [Concomitant]
     Active Substance: ETOPOSIDE
     Dosage: DOSE AND FREQUENCY WERE NOT REPORTED
  11. NIVOLUMAB [Concomitant]
     Active Substance: NIVOLUMAB
     Indication: Diffuse large B-cell lymphoma stage II
     Dosage: DOSE AND FREQUENCY WERE NOT REPORTED - 3 CYCLES
  12. BENDAMUSTINE [Concomitant]
     Active Substance: BENDAMUSTINE
     Indication: Diffuse large B-cell lymphoma stage II
     Dosage: DOSE AND FREQUENCY WERE NOT REPORTED
  13. CYTARABINE [Concomitant]
     Active Substance: CYTARABINE
     Indication: Diffuse large B-cell lymphoma stage II
     Dosage: DOSE AND FREQUENCY WERE NOT REPORTED
  14. MELPHALAN [Concomitant]
     Active Substance: MELPHALAN
     Indication: Diffuse large B-cell lymphoma stage II
     Dosage: DOSE AND FREQUENCY WERE NOT REPORTED
  15. LENALIDOMIDE [Concomitant]
     Active Substance: LENALIDOMIDE
     Indication: Diffuse large B-cell lymphoma stage II
     Dosage: 10-25 MG/D FOR 21 DAYS OF EVERY 28 DAYS
     Route: 065

REACTIONS (2)
  - Off label use [Unknown]
  - Diffuse large B-cell lymphoma recurrent [Unknown]
